FAERS Safety Report 21782400 (Version 2)
Quarter: 2023Q2

REPORT INFORMATION
  Report Type: Spontaneous
  Country: US (occurrence: US)
  Receive Date: 20221227
  Receipt Date: 20230519
  Transmission Date: 20230722
  Serious: Yes (Other)
  Sender: FDA-Public Use
  Company Number: US-SA-SAC20221226000113

PATIENT
  Age: 29 Year
  Sex: Male

DRUGS (6)
  1. ELOCTATE [Suspect]
     Active Substance: EFMOROCTOCOG ALFA
     Indication: Factor VIII deficiency
     Dosage: 5000 UNITS (4500-5500) Q4D FOR SEVERE BLEED, AS NEEDED
     Route: 042
     Dates: start: 202206
  2. ELOCTATE [Suspect]
     Active Substance: EFMOROCTOCOG ALFA
     Indication: Factor VIII deficiency
     Dosage: 5000 UNITS (4500-5500) Q4D FOR SEVERE BLEED, AS NEEDED
     Route: 042
     Dates: start: 202206
  3. ELOCTATE [Suspect]
     Active Substance: EFMOROCTOCOG ALFA
     Dosage: 3000 UNITS (2700-3300)  FOR MILD TO MODERATE BLEED, AS NEEDED
     Route: 042
     Dates: start: 202206
  4. ELOCTATE [Suspect]
     Active Substance: EFMOROCTOCOG ALFA
     Dosage: 3000 UNITS (2700-3300)  FOR MILD TO MODERATE BLEED, AS NEEDED
     Route: 042
     Dates: start: 202206
  5. ELOCTATE [Suspect]
     Active Substance: EFMOROCTOCOG ALFA
     Dosage: 5000 IU, Q4D
     Route: 042
     Dates: start: 20221220
  6. ELOCTATE [Suspect]
     Active Substance: EFMOROCTOCOG ALFA
     Dosage: 5000 IU, Q4D
     Route: 042
     Dates: start: 20221220

REACTIONS (2)
  - Haemorrhage [Unknown]
  - Haemorrhage [Unknown]

NARRATIVE: CASE EVENT DATE: 20220101
